FAERS Safety Report 5247192-2 (Version None)
Quarter: 2007Q1

REPORT INFORMATION
  Report Type: 
  Country: None (occurrence: None)
  Receive Date: 20070221
  Receipt Date: 20070205
  Transmission Date: 20070707
  Serious: Yes (Death)
  Sender: FDA-Public Use
  Company Number: ALK_0126_2007

PATIENT
  Age: 52 Year
  Sex: Male

DRUGS (1)
  1. VIVITROL [Suspect]
     Indication: DRUG USE FOR UNKNOWN INDICATION
     Dosage: DF

REACTIONS (1)
  - DEATH [None]
